FAERS Safety Report 8128079-4 (Version None)
Quarter: 2012Q1

REPORT INFORMATION
  Report Type: 
  Country: None (occurrence: None)
  Receive Date: 20120210
  Receipt Date: 20120201
  Transmission Date: 20120608
  Serious: Yes (Death, Other)
  Sender: FDA-Public Use
  Company Number: JP-PFIZER INC-2011314919

PATIENT
  Age: 74 Year
  Sex: Male

DRUGS (1)
  1. ZOSYN [Suspect]
     Dosage: UNK
     Route: 041
     Dates: start: 20101201, end: 20101201

REACTIONS (2)
  - RHABDOMYOLYSIS [None]
  - RENAL FAILURE ACUTE [None]
